FAERS Safety Report 9478063 (Version 2)
Quarter: 2013Q3

REPORT INFORMATION
  Report Type: Report from Study
  Country: GB (occurrence: GB)
  Receive Date: 20130827
  Receipt Date: 20130827
  Transmission Date: 20140515
  Serious: Yes (Death, Hospitalization)
  Sender: FDA-Public Use
  Company Number: PHHO2009GB04594

PATIENT
  Age: 61 Year
  Sex: Male
  Weight: 92.3 kg

DRUGS (5)
  1. ALISKIREN [Suspect]
     Indication: CARDIOVASCULAR DISORDER
     Dosage: 300 MG, UNK
     Dates: start: 20090113
  2. MIXTARD                                 /DEN/ [Concomitant]
     Indication: DIABETES MELLITUS
     Dosage: 76 IU, QD
     Route: 058
  3. ADIZEM-XL [Concomitant]
     Indication: ANGINA PECTORIS
     Dosage: 200 MG, QD
     Route: 048
  4. CANDESARTAN [Concomitant]
     Indication: HYPERTENSION
     Dosage: 32 MG, QD
     Route: 048
  5. NITRO-SPRAY [Concomitant]
     Indication: ANGINA PECTORIS
     Route: 060

REACTIONS (8)
  - Pulmonary embolism [Fatal]
  - Syncope [Fatal]
  - Loss of consciousness [Fatal]
  - Deep vein thrombosis [Fatal]
  - Fall [Fatal]
  - Hypotension [Fatal]
  - Clavicle fracture [Recovering/Resolving]
  - Rib fracture [Recovering/Resolving]
